FAERS Safety Report 4674179-0 (Version None)
Quarter: 2005Q2

REPORT INFORMATION
  Report Type: 
  Country: None (occurrence: None)
  Receive Date: 20050524
  Receipt Date: 20050515
  Transmission Date: 20051028
  Serious: Yes (Other)
  Sender: FDA-Public Use
  Company Number: HQWYE739516MAY05

PATIENT
  Sex: Male

DRUGS (1)
  1. EFFEXOR XR [Suspect]
     Indication: DEPRESSION
     Dosage: 150 MG 1X PER 1 DAY
     Dates: start: 20040101

REACTIONS (3)
  - DEPRESSION [None]
  - FEELING OF DESPAIR [None]
  - SUICIDAL IDEATION [None]
